FAERS Safety Report 9486736 (Version 1)
Quarter: 2013Q3

REPORT INFORMATION
  Report Type: Spontaneous
  Country: US (occurrence: US)
  Receive Date: 20130829
  Receipt Date: 20130829
  Transmission Date: 20140515
  Serious: No
  Sender: FDA-Public Use
  Company Number: US-BRISTOL-MYERS SQUIBB COMPANY-18983619

PATIENT
  Age: 61 Year
  Sex: Female
  Weight: 75.73 kg

DRUGS (13)
  1. KOMBIGLYZE XR [Suspect]
     Indication: TYPE 2 DIABETES MELLITUS
     Dosage: 1DF= 5/500-UNITS NOS?INCR TO XR 5/1000 ONCE DAILY
     Dates: start: 20130504
  2. LISINOPRIL + HCTZ [Concomitant]
     Dosage: 1DF=10-12.5MG
  3. ADVAIR DISKUS [Concomitant]
     Dosage: 1DF= 500/50-UNITS NOS
  4. LIPITOR [Concomitant]
  5. FLOVENT [Concomitant]
     Dosage: 1DF=HFA 220 MCG-ACT
     Route: 045
  6. FLUTICASONE PROPIONATE [Concomitant]
     Route: 045
  7. CENTRUM SILVER [Concomitant]
  8. FISH OIL [Concomitant]
  9. VITAMIN E [Concomitant]
     Dosage: 1DF=400 UNITS
  10. GABAPENTIN [Concomitant]
  11. ULTRAM [Concomitant]
  12. CYMBALTA [Concomitant]
  13. HYDROXYZINE [Concomitant]
     Dosage: 1-2 CAPS AS NEEDED

REACTIONS (6)
  - Cough [Unknown]
  - Pyrexia [Unknown]
  - Vomiting [Unknown]
  - Respiratory tract congestion [Unknown]
  - Cyst [Unknown]
  - Inflammation [Unknown]
